FAERS Safety Report 9123874 (Version 1)
Quarter: 2013Q1

REPORT INFORMATION
  Report Type: Spontaneous
  Country: JP (occurrence: JP)
  Receive Date: 20130115
  Receipt Date: 20130115
  Transmission Date: 20140127
  Serious: Yes (Other)
  Sender: FDA-Public Use
  Company Number: PHHY2013JP003472

PATIENT
  Sex: 0

DRUGS (1)
  1. EXELON PATCH [Suspect]
     Route: 062

REACTIONS (1)
  - Loss of consciousness [Unknown]
